FAERS Safety Report 15989299 (Version 1)
Quarter: 2019Q1

REPORT INFORMATION
  Report Type: Report from Study
  Country: None (occurrence: IT)
  Receive Date: 20190221
  Receipt Date: 20190221
  Transmission Date: 20190418
  Serious: Yes (Hospitalization)
  Sender: FDA-Public Use
  Company Number: IT-ABBVIE-19S-083-2670111-00

PATIENT
  Age: 77 Year
  Sex: Male

DRUGS (1)
  1. DUODOPA [Suspect]
     Active Substance: CARBIDOPA\LEVODOPA
     Indication: PARKINSON^S DISEASE
     Dosage: MD: 7+3??CR: 3,8??ED: 2
     Route: 050
     Dates: start: 20110301, end: 20190214

REACTIONS (2)
  - Gastric infection [Unknown]
  - Stoma site infection [Unknown]

NARRATIVE: CASE EVENT DATE: 201902
